FAERS Safety Report 23649364 (Version 1)
Quarter: 2024Q1

REPORT INFORMATION
  Report Type: Spontaneous
  Country: US (occurrence: US)
  Receive Date: 20240319
  Receipt Date: 20240319
  Transmission Date: 20240409
  Serious: No
  Sender: FDA-Public Use
  Company Number: US-MYLANLABS-2024M1021079

PATIENT
  Sex: Female
  Weight: 64.86 kg

DRUGS (2)
  1. ESTRADIOL TRANSDERMAL SYSTEM [Suspect]
     Active Substance: ESTRADIOL
     Indication: Night sweats
     Dosage: 0.075 MILLIGRAM, QD
     Route: 062
  2. ESTRADIOL TRANSDERMAL SYSTEM [Suspect]
     Active Substance: ESTRADIOL
     Indication: Sleep disorder

REACTIONS (4)
  - Stress [Unknown]
  - Breast pain [Unknown]
  - Dizziness [Unknown]
  - Wrong technique in product usage process [Unknown]
